FAERS Safety Report 13859382 (Version 1)
Quarter: 2017Q3

REPORT INFORMATION
  Report Type: Spontaneous
  Country: GB (occurrence: GB)
  Receive Date: 20170811
  Receipt Date: 20170811
  Transmission Date: 20171127
  Serious: Yes (Life-Threatening)
  Sender: FDA-Public Use
  Company Number: GB-ROCHE-1977553

PATIENT
  Age: 71 Year
  Sex: Female
  Weight: 58 kg

DRUGS (1)
  1. AVASTIN [Suspect]
     Active Substance: BEVACIZUMAB
     Indication: OVARIAN CANCER STAGE IV
     Dosage: MOST RECENT DOSE ON 22/JUN/2017.
     Route: 042
     Dates: start: 20161117

REACTIONS (1)
  - Perforation [Not Recovered/Not Resolved]

NARRATIVE: CASE EVENT DATE: 20170723
